FAERS Safety Report 24195094 (Version 2)
Quarter: 2024Q3

REPORT INFORMATION
  Report Type: Spontaneous
  Country: DE (occurrence: DE)
  Receive Date: 20240809
  Receipt Date: 20240919
  Transmission Date: 20241017
  Serious: Yes (Other)
  Sender: NOVARTIS
  Company Number: DE-002147023-NVSC2024DE160083

PATIENT
  Sex: Female

DRUGS (3)
  1. GLYCOPYRRONIUM\INDACATEROL [Suspect]
     Active Substance: GLYCOPYRRONIUM\INDACATEROL
     Indication: Chronic obstructive pulmonary disease
     Dosage: UNK, QD (85 ?G/43 ?G) (ABOUT 10 YEARS)
     Route: 065
  2. MONTELUKAST [Concomitant]
     Active Substance: MONTELUKAST SODIUM
     Indication: Product used for unknown indication
     Dosage: UNK
     Route: 065
  3. IBUPROFEN [Concomitant]
     Active Substance: IBUPROFEN
     Indication: Product used for unknown indication
     Dosage: UNK (OCCASIONALLY)
     Route: 065

REACTIONS (7)
  - Ulcerative keratitis [Unknown]
  - Glaucoma [Unknown]
  - Vitreous loss [Unknown]
  - Candida infection [Unknown]
  - Blepharitis [Unknown]
  - Conjunctivitis [Unknown]
  - Eye pain [Unknown]
